FAERS Safety Report 6461027-1 (Version None)
Quarter: 2009Q4

REPORT INFORMATION
  Report Type: 
  Country: None (occurrence: None)
  Receive Date: 20091130
  Receipt Date: 20091120
  Transmission Date: 20100525
  Serious: Yes (Other)
  Sender: FDA-Public Use
  Company Number: B0456446A

PATIENT
  Age: 29 Year
  Sex: Male

DRUGS (7)
  1. COMBIVIR [Suspect]
     Indication: HIV INFECTION
     Dosage: 1TAB TWICE PER DAY
     Route: 048
     Dates: start: 20061116
  2. EFAVIRENZ [Suspect]
     Indication: HIV INFECTION
     Dosage: 600MG PER DAY
     Route: 048
     Dates: start: 20061116
  3. RIFAMPICIN [Suspect]
     Indication: TUBERCULOSIS
  4. ISONIAZID [Suspect]
     Indication: TUBERCULOSIS
  5. ETHAMBUTOL HYDROCHLORIDE [Concomitant]
     Indication: TUBERCULOSIS
  6. DEXAMETHASONE TAB [Concomitant]
     Indication: TUBERCULOSIS
  7. PYRAZINAMIDE [Concomitant]

REACTIONS (3)
  - DECREASED APPETITE [None]
  - HEPATITIS [None]
  - HYPERBILIRUBINAEMIA [None]
